FAERS Safety Report 23956247 (Version 3)
Quarter: 2024Q3

REPORT INFORMATION
  Report Type: Spontaneous
  Country: US (occurrence: US)
  Receive Date: 20240610
  Receipt Date: 20240813
  Transmission Date: 20241016
  Serious: No
  Sender: SANOFI AVENTIS
  Company Number: US-SA-SAC20240606000231

PATIENT
  Age: 53 Year
  Sex: Female

DRUGS (1)
  1. DUPIXENT [Suspect]
     Active Substance: DUPILUMAB
     Indication: Eosinophilic oesophagitis
     Dosage: 300 MG, QW
     Route: 058
     Dates: start: 20231018

REACTIONS (5)
  - Vitamin B12 decreased [Unknown]
  - Vitamin D decreased [Unknown]
  - Fatigue [Unknown]
  - Hypergammaglobulinaemia benign monoclonal [Unknown]
  - Arthralgia [Unknown]

NARRATIVE: CASE EVENT DATE: 20240603
